FAERS Safety Report 12132340 (Version 1)
Quarter: 2016Q1

REPORT INFORMATION
  Report Type: Spontaneous
  Country: US (occurrence: None)
  Receive Date: 20160229
  Receipt Date: 20160229
  Transmission Date: 20160526
  Serious: Yes (Death, Hospitalization)
  Sender: FDA-Public Use
  Company Number: None

PATIENT
  Age: 63 Year
  Sex: Female
  Weight: 53.52 kg

DRUGS (15)
  1. SYMBICORT [Concomitant]
     Active Substance: BUDESONIDE\FORMOTEROL FUMARATE DIHYDRATE
  2. DILAUDED [Concomitant]
  3. PAXIL [Concomitant]
     Active Substance: PAROXETINE HYDROCHLORIDE
  4. NEURONTIN [Concomitant]
     Active Substance: GABAPENTIN
  5. PREDNISONE. [Concomitant]
     Active Substance: PREDNISONE
  6. ZOFRAN [Concomitant]
     Active Substance: ONDANSETRON HYDROCHLORIDE
  7. H.P. ACTHAR [Suspect]
     Active Substance: CORTICOTROPIN
     Indication: POLYMYOSITIS
     Route: 058
     Dates: start: 20151204, end: 20160123
  8. FLONASE [Concomitant]
     Active Substance: FLUTICASONE PROPIONATE
  9. QUESTRAN [Concomitant]
     Active Substance: CHOLESTYRAMINE
  10. OXYBUTININ [Concomitant]
     Active Substance: OXYBUTYNIN
  11. NEBULIZER [Concomitant]
     Active Substance: DEVICE
  12. BUSPAR [Concomitant]
     Active Substance: BUSPIRONE HYDROCHLORIDE
  13. H.P. ACTHAR [Suspect]
     Active Substance: CORTICOTROPIN
     Indication: RHEUMATOID ARTHRITIS
     Route: 058
     Dates: start: 20151204, end: 20160123
  14. O2 [Concomitant]
  15. KLONOPIN [Concomitant]
     Active Substance: CLONAZEPAM

REACTIONS (6)
  - Sepsis [None]
  - Abdominal pain upper [None]
  - Multiple organ dysfunction syndrome [None]
  - Renal disorder [None]
  - Gastrointestinal perforation [None]
  - Blood electrolytes abnormal [None]

NARRATIVE: CASE EVENT DATE: 20160125
